FAERS Safety Report 24287695 (Version 1)
Quarter: 2024Q3

REPORT INFORMATION
  Report Type: Spontaneous
  Country: US (occurrence: US)
  Receive Date: 20240905
  Receipt Date: 20240905
  Transmission Date: 20241016
  Serious: No
  Sender: SPRINGWORKS THERAPEUTIC
  Company Number: US-SPRINGWORKS THERAPEUTICS-SW-001758

PATIENT
  Sex: Female

DRUGS (2)
  1. OGSIVEO [Suspect]
     Active Substance: NIROGACESTAT\NIROGACESTAT HYDROBROMIDE
     Indication: Desmoid tumour
     Dosage: UNK
     Route: 065
  2. OGSIVEO [Suspect]
     Active Substance: NIROGACESTAT\NIROGACESTAT HYDROBROMIDE
     Dosage: UNK
     Route: 065

REACTIONS (3)
  - Rash [Unknown]
  - Nausea [Unknown]
  - Diarrhoea [Unknown]
